FAERS Safety Report 5575852-2 (Version None)
Quarter: 2007Q4

REPORT INFORMATION
  Report Type: 
  Country: None (occurrence: None)
  Receive Date: 20071130
  Receipt Date: 20070730
  Transmission Date: 20080405
  Serious: No
  Sender: FDA-Public Use
  Company Number: US200708000072

PATIENT
  Age: 82 Year
  Sex: Female

DRUGS (9)
  1. BYETTA [Suspect]
     Indication: TYPE 2 DIABETES MELLITUS
     Dosage: 5 UG, 2/D, SUBCUTANEOUS; 10 UG, 2/D, SUBCUTANEOUS,  5 UG, EACH MORNING, SUBCUTANEOUS; 10 UG, EACH EV
     Route: 058
     Dates: start: 20070101, end: 20070701
  2. BYETTA [Suspect]
     Indication: TYPE 2 DIABETES MELLITUS
     Dosage: 5 UG, 2/D, SUBCUTANEOUS; 10 UG, 2/D, SUBCUTANEOUS,  5 UG, EACH MORNING, SUBCUTANEOUS; 10 UG, EACH EV
     Route: 058
     Dates: start: 20070101, end: 20070701
  3. BYETTA [Suspect]
     Indication: TYPE 2 DIABETES MELLITUS
     Dosage: 5 UG, 2/D, SUBCUTANEOUS; 10 UG, 2/D, SUBCUTANEOUS,  5 UG, EACH MORNING, SUBCUTANEOUS; 10 UG, EACH EV
     Route: 058
     Dates: start: 20061001
  4. BYETTA [Suspect]
     Indication: TYPE 2 DIABETES MELLITUS
     Dosage: 5 UG, 2/D, SUBCUTANEOUS; 10 UG, 2/D, SUBCUTANEOUS,  5 UG, EACH MORNING, SUBCUTANEOUS; 10 UG, EACH EV
     Route: 058
     Dates: start: 20070701
  5. EXENATIDE 5MCG PEN, DISPOSABLE DEVICE (EXENATIDE PEN (5 MCG)) PEN, DIS [Concomitant]
  6. EXENATIDE 10MCG PEN, DISPOSABLE DEVICE (EXENATIDE PEN (10 MCG)) PEN, D [Concomitant]
  7. GEMFIBROZIL [Concomitant]
  8. LASIX [Concomitant]
  9. DARVOCET-N 100 [Concomitant]

REACTIONS (3)
  - DECREASED APPETITE [None]
  - MALAISE [None]
  - NAUSEA [None]
